FAERS Safety Report 4897021-1 (Version None)
Quarter: 2006Q1

REPORT INFORMATION
  Report Type: 
  Country: None (occurrence: None)
  Receive Date: 20060127
  Receipt Date: 20060113
  Transmission Date: 20060701
  Serious: Yes (Hospitalization)
  Sender: FDA-Public Use
  Company Number: CH200601001321

PATIENT
  Age: 17 Year
  Sex: Female

DRUGS (4)
  1. ZYPREXA [Suspect]
     Indication: EATING DISORDER
     Dosage: 2.5 MG, DAILY (1/D), ORAL; SEE IMAGE
     Route: 048
     Dates: start: 20050101, end: 20051027
  2. ZYPREXA [Suspect]
     Indication: EATING DISORDER
     Dosage: 2.5 MG, DAILY (1/D), ORAL; SEE IMAGE
     Route: 048
     Dates: start: 20051027, end: 20051027
  3. FLUOXETINE HCL [Suspect]
     Dosage: 1, DAILY (1/D), ORAL
     Route: 048
     Dates: start: 20051012, end: 20051027
  4. TEMESTA                  (LORAZEPAM) [Concomitant]

REACTIONS (8)
  - BALANCE DISORDER [None]
  - DISORIENTATION [None]
  - DRY MOUTH [None]
  - DYSARTHRIA [None]
  - INTENTIONAL OVERDOSE [None]
  - MOVEMENT DISORDER [None]
  - MYDRIASIS [None]
  - URINARY INCONTINENCE [None]
